FAERS Safety Report 7541300-6 (Version None)
Quarter: 2011Q2

REPORT INFORMATION
  Report Type: 
  Country: None (occurrence: None)
  Receive Date: 20110610
  Receipt Date: 20110530
  Transmission Date: 20111010
  Serious: Yes (Hospitalization)
  Sender: FDA-Public Use
  Company Number: FR-GENENTECH-319955

PATIENT
  Sex: Female

DRUGS (2)
  1. XOLAIR [Suspect]
     Indication: PRODUCT USED FOR UNKNOWN INDICATION
     Dosage: 300 MG, Q15D
  2. XOLAIR [Suspect]
     Dosage: UNK
     Route: 065
     Dates: start: 20110517

REACTIONS (6)
  - ANGIOEDEMA [None]
  - PAIN [None]
  - SWELLING [None]
  - RESPIRATORY DISORDER [None]
  - DYSPHAGIA [None]
  - DISCOMFORT [None]
